FAERS Safety Report 15840877 (Version 1)
Quarter: 2019Q1

REPORT INFORMATION
  Report Type: Spontaneous
  Country: JP (occurrence: JP)
  Receive Date: 20190118
  Receipt Date: 20190118
  Transmission Date: 20190417
  Serious: Yes (Other)
  Sender: FDA-Public Use
  Company Number: JP-TEVA-2019-JP-100075

PATIENT
  Age: 45 Year
  Sex: Male

DRUGS (2)
  1. PREDNISOLONE. [Suspect]
     Active Substance: PREDNISOLONE
     Indication: MACULOPATHY
     Dosage: SYSTEMIC
     Route: 065
  2. ATROPINE. [Suspect]
     Active Substance: ATROPINE
     Indication: MACULOPATHY
     Dosage: CYCLOPLEGIC EYE DROPS
     Route: 061

REACTIONS (1)
  - Drug ineffective [Unknown]
